FAERS Safety Report 20380342 (Version 3)
Quarter: 2022Q1

REPORT INFORMATION
  Report Type: Report from Study
  Country: GB (occurrence: GB)
  Receive Date: 20220127
  Receipt Date: 20220222
  Transmission Date: 20220423
  Serious: No
  Sender: FDA-Public Use
  Company Number: GB-CELLTRION INC.-2022GB000665

PATIENT

DRUGS (41)
  1. TRASTUZUMAB [Suspect]
     Active Substance: TRASTUZUMAB
     Indication: Breast cancer metastatic
     Dosage: 714 MILLIGRAM, SINGLE /LOADING DOSE 1ST CYCLE (PHARMACEUTICAL DOSE FORM: 230)
     Route: 042
     Dates: start: 20161115, end: 20161115
  2. TRASTUZUMAB [Suspect]
     Active Substance: TRASTUZUMAB
     Indication: HER2 positive breast cancer
     Dosage: 714 MILLIGRAM, SINGLE /LOADING DOSE 1ST CYCLE (PHARMACEUTICAL DOSE FORM: 230)
     Route: 042
     Dates: start: 20161115, end: 20161115
  3. TRASTUZUMAB [Suspect]
     Active Substance: TRASTUZUMAB
     Dosage: 525 MILLIGRAM, EVERY 3 WEEKS (MAINTENANCE DOSE)/ (PHARMACEUTICAL DOSE FORM: 230)/ (CUMULATIVE DOSE:
     Route: 042
     Dates: start: 20161206, end: 20180208
  4. TRASTUZUMAB [Suspect]
     Active Substance: TRASTUZUMAB
     Dosage: 525 MILLIGRAM, EVERY 3 WEEKS (MAINTENANCE DOSE)/ (PHARMACEUTICAL DOSE FORM: 230)/ (CUMULATIVE DOSE:
     Route: 042
     Dates: start: 20161206, end: 20180208
  5. TRASTUZUMAB [Suspect]
     Active Substance: TRASTUZUMAB
     Dosage: 600 MG EVERY 3 WEEKS (PHARMACEUTICAL DOSE FORM: 230) (CUMMULATIVE DOSE TO FIRST REACTION: 9400 MG)
     Route: 058
     Dates: start: 20180405
  6. TRASTUZUMAB [Suspect]
     Active Substance: TRASTUZUMAB
     Dosage: 600 MG EVERY 3 WEEKS (PHARMACEUTICAL DOSE FORM: 230) (CUMMULATIVE DOSE TO FIRST REACTION: 9400 MG)
     Route: 058
     Dates: start: 20180405
  7. DOCETAXEL [Suspect]
     Active Substance: DOCETAXEL
     Indication: Breast cancer metastatic
     Dosage: 148 MILLIGRAM, EVERY 3 WEEKS/ (PHARMACEUTICAL DOSE FORM: 231)
     Route: 042
     Dates: start: 20161114, end: 20161114
  8. DOCETAXEL [Suspect]
     Active Substance: DOCETAXEL
     Indication: HER2 positive breast cancer
     Dosage: 148 MILLIGRAM, EVERY 3 WEEKS/ (PHARMACEUTICAL DOSE FORM: 231)
     Route: 042
     Dates: start: 20161114, end: 20161114
  9. DOCETAXEL [Suspect]
     Active Substance: DOCETAXEL
     Dosage: 148 MILLIGRAM, EVERY 3 WEEKS/ (PHARMACEUTICAL DOSE FORM: 231)
     Route: 042
     Dates: start: 20161114, end: 20161114
  10. DOCETAXEL [Suspect]
     Active Substance: DOCETAXEL
     Dosage: 88 MILLIGRAM, EVERY 3 WEEKS/ (PHARMACEUTICAL DOSE FORM: 231)/ (CUMULATIVE DOSE: 439.8254 MG)
     Route: 042
     Dates: start: 20170126, end: 20180216
  11. DOCETAXEL [Suspect]
     Active Substance: DOCETAXEL
     Dosage: 88 MILLIGRAM, EVERY 3 WEEKS/ (PHARMACEUTICAL DOSE FORM: 231)/ (CUMULATIVE DOSE: 439.8254 MG)
     Route: 042
     Dates: start: 20170126, end: 20180216
  12. DOCETAXEL [Suspect]
     Active Substance: DOCETAXEL
     Dosage: 88 MILLIGRAM, EVERY 3 WEEKS/ (PHARMACEUTICAL DOSE FORM: 231)/ (CUMULATIVE DOSE: 439.8254 MG)
     Route: 042
     Dates: start: 20170126, end: 20180216
  13. DOCETAXEL [Suspect]
     Active Substance: DOCETAXEL
     Dosage: 108 MILLIGRAM, EVERY 3 WEEKS/ (PHARMACEUTICAL DOSE FORM: 231)/ (CUMULATIVE DOSE: 802.0714 MG )
     Route: 042
     Dates: start: 20161206, end: 20170126
  14. DOCETAXEL [Suspect]
     Active Substance: DOCETAXEL
     Dosage: 108 MILLIGRAM, EVERY 3 WEEKS/ (PHARMACEUTICAL DOSE FORM: 231)/ (CUMULATIVE DOSE: 802.0714 MG )
     Route: 042
     Dates: start: 20161206, end: 20170126
  15. DOCETAXEL [Suspect]
     Active Substance: DOCETAXEL
     Dosage: 108 MILLIGRAM, EVERY 3 WEEKS/ (PHARMACEUTICAL DOSE FORM: 231)/ (CUMULATIVE DOSE: 802.0714 MG )
     Route: 042
     Dates: start: 20161206, end: 20170126
  16. PERTUZUMAB [Suspect]
     Active Substance: PERTUZUMAB
     Indication: Breast cancer metastatic
     Dosage: 840 MILLIGRAM, SINGLE/ LOADING DOSE 1ST CYCLE (PHARMACEUTICAL DOSE FORM: 230)
     Route: 042
     Dates: start: 20161115, end: 20161115
  17. PERTUZUMAB [Suspect]
     Active Substance: PERTUZUMAB
     Indication: HER2 positive breast cancer
     Dosage: 840 MILLIGRAM,SINGLE/ LOADING DOSE 1ST CYCLE (PHARMACEUTICAL DOSE FORM: 230)
     Route: 042
     Dates: start: 20161115, end: 20161115
  18. PERTUZUMAB [Suspect]
     Active Substance: PERTUZUMAB
     Dosage: 420 MILLIGRAM, EVERY 3 WEEKS MAINTENANCE DOSE/ (PHARMACEUTICAL DOSE FORM: 230)/ (CUMULATIVE DOSE: 31
     Route: 042
     Dates: start: 20161206, end: 20161208
  19. PERTUZUMAB [Suspect]
     Active Substance: PERTUZUMAB
     Dosage: 420 MILLIGRAM, EVERY 3 WEEKS MAINTENANCE DOSE/ (PHARMACEUTICAL DOSE FORM: 230)/ (CUMULATIVE DOSE: 31
     Route: 042
     Dates: start: 20161206, end: 20161208
  20. AMOXICILLIN [Concomitant]
     Active Substance: AMOXICILLIN
     Dosage: 1500 MG, 1/DAY/ (PHARMACEUTICAL DOSE FORM: 5)
     Route: 048
     Dates: start: 20210812, end: 20210817
  21. AMOXICILLIN [Concomitant]
     Active Substance: AMOXICILLIN
     Dosage: 1500 MG, 1/DAY/  (PHARMACEUTICAL DOSE FORM: 245)/ (CUMULATIVE DOSE:1329000.0 MG)
     Route: 048
     Dates: start: 20191014, end: 20191021
  22. AMOXICILLIN [Concomitant]
     Active Substance: AMOXICILLIN
     Dosage: 1500 MG, 1/DAY/ (PHARMACEUTICAL DOSE FORM: 5)/ (CUMULATIVE DOSE: 936062.5 MG )
     Route: 048
     Dates: start: 20190125, end: 20190129
  23. CETIRIZINE [Concomitant]
     Active Substance: CETIRIZINE HYDROCHLORIDE
     Dosage: 10 MILLIGRAM, 1/DAY (PHARMACEUTICAL DOSE FORM: 245)/ (CUMULATIVE DOSE: 3390.0 MG)
     Route: 048
     Dates: start: 20180415, end: 20180421
  24. DEXAMETHASONE [Concomitant]
     Active Substance: DEXAMETHASONE
     Dosage: 16 MG (PHARMACEUTICAL DOSE FORM: 245)
     Route: 048
     Dates: start: 20161124, end: 20170216
  25. BENZYDAMINE HYDROCHLORIDE [Concomitant]
     Active Substance: BENZYDAMINE HYDROCHLORIDE
     Dosage: 40 MG, 1/DAY (CUMULATIVE DOSE: 6238.3335 MG)
     Route: 048
     Dates: start: 20161206, end: 201703
  26. FLUCLOXACILLIN [Concomitant]
     Active Substance: FLUCLOXACILLIN
     Dosage: 2000 MG, 1/DAY (PHARMACEUTICAL DOSE FORM: 245)/ (CUMULATIVE DOSE: 826000.0 MG)
     Route: 048
     Dates: start: 20180628, end: 20180704
  27. FLUCLOXACILLIN [Concomitant]
     Active Substance: FLUCLOXACILLIN
     Dosage: 8 GRAM, 1/DAY (PHARMACEUTICAL DOSE FORM: 245)/ (CUMULATIVE DOSE: 11432.0 G)
     Route: 048
     Dates: start: 20210409, end: 20210413
  28. INFLUENZA VIRUS VACCINE [Concomitant]
     Active Substance: INFLUENZA VIRUS VACCINE
     Dosage: UNK
     Route: 030
     Dates: start: 20211023, end: 20211023
  29. LISINOPRIL [Concomitant]
     Active Substance: LISINOPRIL
     Dosage: 2.5 MG, 1/DAY (PHARMACEUTICAL DOSE FORM: 245)/ (CUMULATIVE DOSE: 3090.0 MG)
     Route: 048
     Dates: start: 20200928
  30. LOPERAMIDE [Concomitant]
     Active Substance: LOPERAMIDE
     Dosage: 2 MG, 1/DAY/ PHARMACEUTICAL DOSE FORM: 245)/ (CUMULATIVE DOSE: 311.91666 MG)
     Route: 048
     Dates: start: 20161206, end: 2017
  31. NITROFURANTOIN [Concomitant]
     Active Substance: NITROFURANTOIN
     Dosage: 100 MG, 1/DAY (PHARMACEUTICAL DOSE FORM: 245)/ (CUMULATIVE DOSE:132004.17 MG)
     Route: 048
     Dates: start: 20201221, end: 20201228
  32. NITROFURANTOIN [Concomitant]
     Active Substance: NITROFURANTOIN
     Dosage: 200 MG, 1/DAY (PHARMACEUTICAL DOSE FORM: 245)/ (CUMULATIVE DOSE: 141000.0 MG )
     Route: 048
     Dates: start: 20190416, end: 20190422
  33. PREDNISOLONE [Concomitant]
     Active Substance: PREDNISOLONE
     Dosage: 15 MG, 1/DAY (CUMULATIVE DOSE: 4830.0 MG)
     Route: 048
     Dates: start: 20180329, end: 20180404
  34. TRANEXAMIC ACID [Concomitant]
     Active Substance: TRANEXAMIC ACID
     Dosage: 3 GRAM, 1/DAY (PHARMACEUTICAL DOSE FORM: 245)/ (CUMULATIVE DOSE: 4002.125 G)
     Route: 048
     Dates: start: 20210104, end: 20210104
  35. CAPECITABINE [Concomitant]
     Active Substance: CAPECITABINE
     Dosage: 2500 MILLIGRAM, BID
     Route: 048
     Dates: start: 20180405, end: 20180405
  36. CAPECITABINE [Concomitant]
     Active Substance: CAPECITABINE
     Dosage: 1950 MILLIGRAM, BID
     Route: 048
     Dates: start: 20180426, end: 20190709
  37. CAPECITABINE [Concomitant]
     Active Substance: CAPECITABINE
     Dosage: 1800 MILLIGRAM, BID
     Route: 048
     Dates: start: 20190730, end: 20200728
  38. ADO-TRASTUZUMAB EMTANSINE [Concomitant]
     Active Substance: ADO-TRASTUZUMAB EMTANSINE
     Dosage: 320 MG EVERY 3 WEEKS
     Route: 042
     Dates: start: 20200824, end: 20210209
  39. PACLITAXEL [Concomitant]
     Active Substance: PACLITAXEL
     Dosage: 162 MG, WEEKLY
     Route: 042
     Dates: start: 20210326, end: 20210609
  40. PACLITAXEL [Concomitant]
     Active Substance: PACLITAXEL
     Dosage: 162 MG, WEEKLY
     Route: 042
     Dates: start: 20210615, end: 20210726
  41. PACLITAXEL [Concomitant]
     Active Substance: PACLITAXEL
     Dosage: 162 MG, WEEKLY
     Route: 042
     Dates: start: 20210727, end: 20210819

REACTIONS (3)
  - Musculoskeletal chest pain [Recovered/Resolved]
  - Chest pain [Recovered/Resolved]
  - Off label use [Unknown]

NARRATIVE: CASE EVENT DATE: 20170511
